FAERS Safety Report 26207723 (Version 1)
Quarter: 2025Q4

REPORT INFORMATION
  Report Type: Spontaneous
  Country: US (occurrence: US)
  Receive Date: 20251229
  Receipt Date: 20251229
  Transmission Date: 20260118
  Serious: No
  Sender: ABBVIE
  Company Number: US-ABBVIE-6604458

PATIENT
  Age: 84 Year

DRUGS (1)
  1. SKYRIZI [Suspect]
     Active Substance: RISANKIZUMAB-RZAA
     Indication: Product used for unknown indication
     Route: 042

REACTIONS (4)
  - Joint stiffness [Unknown]
  - Arthralgia [Unknown]
  - Hyperhidrosis [Unknown]
  - Weight increased [Unknown]
